FAERS Safety Report 18905004 (Version 1)
Quarter: 2021Q1

REPORT INFORMATION
  Report Type: Spontaneous
  Country: IT (occurrence: IT)
  Receive Date: 20210217
  Receipt Date: 20210217
  Transmission Date: 20210420
  Serious: Yes (Hospitalization)
  Sender: FDA-Public Use
  Company Number: IT-ELI_LILLY_AND_COMPANY-IT202102003921

PATIENT
  Age: 27 Year
  Sex: Female

DRUGS (4)
  1. TAVOR (LORAZEPAM) [Suspect]
     Active Substance: LORAZEPAM
     Indication: PERSONALITY DISORDER
     Dosage: 40 DOSAGE FORM, OTHER
     Route: 048
     Dates: start: 20190925, end: 20190925
  2. FLUOXETINE HYDROCHLORIDE. [Suspect]
     Active Substance: FLUOXETINE HYDROCHLORIDE
     Indication: PERSONALITY DISORDER
     Dosage: 560 MG, OTHER
     Route: 048
     Dates: start: 20190925, end: 20190925
  3. TRILAFON [Suspect]
     Active Substance: PERPHENAZINE
     Indication: PERSONALITY DISORDER
     Dosage: 10 DOSAGE FORM, OTHER
     Route: 048
     Dates: start: 20190925, end: 20190925
  4. VALDORM [FLURAZEPAM HYDROCHLORIDE] [Suspect]
     Active Substance: FLURAZEPAM HYDROCHLORIDE
     Indication: PERSONALITY DISORDER
     Dosage: 10 DOSAGE FORM, OTHER
     Route: 048
     Dates: start: 20190925, end: 20190925

REACTIONS (2)
  - Drug abuse [Recovering/Resolving]
  - Sopor [Recovering/Resolving]

NARRATIVE: CASE EVENT DATE: 20190925
